FAERS Safety Report 18410960 (Version 1)
Quarter: 2020Q4

REPORT INFORMATION
  Report Type: Spontaneous
  Country: US (occurrence: US)
  Receive Date: 20201021
  Receipt Date: 20201021
  Transmission Date: 20210114
  Serious: Yes (Hospitalization, Other)
  Sender: FDA-Public Use
  Company Number: US-AMGEN-USASP2020166379

PATIENT
  Age: 13 Year
  Sex: Male

DRUGS (2)
  1. PROLIA [Suspect]
     Active Substance: DENOSUMAB
     Dosage: 30 MILLIGRAM
     Route: 065
     Dates: end: 201903
  2. PROLIA [Suspect]
     Active Substance: DENOSUMAB
     Indication: NOONAN SYNDROME
     Dosage: 60 MILLIGRAM, QMO, 1.7 MG/KG
     Route: 065
     Dates: start: 201809

REACTIONS (10)
  - Off label use [Unknown]
  - Pain in extremity [Not Recovered/Not Resolved]
  - Gait disturbance [Unknown]
  - Arthralgia [Recovering/Resolving]
  - Hypercalcaemia [Recovered/Resolved]
  - Pain [Recovering/Resolving]
  - Vitamin D decreased [Unknown]
  - Blood parathyroid hormone increased [Unknown]
  - Urine calcium/creatinine ratio increased [Recovering/Resolving]
  - Hypocalcaemia [Recovered/Resolved]

NARRATIVE: CASE EVENT DATE: 2018
